FAERS Safety Report 9914523 (Version 8)
Quarter: 2015Q2

REPORT INFORMATION
  Report Type: Spontaneous
  Country: US (occurrence: US)
  Receive Date: 20140220
  Receipt Date: 20150417
  Transmission Date: 20150821
  Serious: Yes (Hospitalization, Other)
  Sender: FDA-Public Use
  Company Number: US-MERCK-1402USA005160

PATIENT
  Sex: Female
  Weight: 55.96 kg

DRUGS (5)
  1. BONIVA [Suspect]
     Active Substance: IBANDRONATE SODIUM
     Indication: BONE DENSITY DECREASED
  2. BONIVA [Suspect]
     Active Substance: IBANDRONATE SODIUM
     Indication: OSTEOPENIA
     Dosage: UNK
     Route: 048
     Dates: start: 2008
  3. LEVOTHYROXINE SODIUM. [Concomitant]
     Active Substance: LEVOTHYROXINE SODIUM
     Indication: HYPOTHYROIDISM
     Dosage: UNK
     Dates: start: 1986
  4. FOSAMAX [Suspect]
     Active Substance: ALENDRONATE SODIUM
     Indication: THYROID DISORDER
     Dosage: 70 MG, UNK
     Route: 048
     Dates: start: 20060429
  5. FOSAMAX [Suspect]
     Active Substance: ALENDRONATE SODIUM
     Indication: OSTEOPENIA
     Dosage: UNK
     Route: 048
     Dates: start: 2000

REACTIONS (10)
  - Blood cholesterol increased [Unknown]
  - Osteoporosis [Unknown]
  - Hypertension [Unknown]
  - Blister [Unknown]
  - Rhinoplasty [Unknown]
  - Glaucoma [Unknown]
  - Off label use [Unknown]
  - Mitral valve prolapse [Unknown]
  - Femur fracture [Unknown]
  - Intramedullary rod insertion [Unknown]

NARRATIVE: CASE EVENT DATE: 2000
